FAERS Safety Report 4835881-0 (Version None)
Quarter: 2005Q4

REPORT INFORMATION
  Report Type: 
  Country: None (occurrence: None)
  Receive Date: 20051123
  Receipt Date: 20051114
  Transmission Date: 20060501
  Serious: Yes (Hospitalization)
  Sender: FDA-Public Use
  Company Number: 2005CG01883

PATIENT
  Age: 26369 Day
  Sex: Female

DRUGS (10)
  1. NEXIUM [Suspect]
     Route: 048
     Dates: start: 20050918, end: 20051018
  2. FUCIDINE CAP [Suspect]
     Route: 061
     Dates: start: 20051008, end: 20051018
  3. PREVISCAN [Concomitant]
  4. PRAXILENE [Concomitant]
  5. AERIUS [Concomitant]
  6. IXPRIM [Concomitant]
  7. RIVOTRIL [Concomitant]
  8. DRIPTANE [Concomitant]
  9. DIANTALVIC [Concomitant]
  10. ENDOTELON [Concomitant]

REACTIONS (4)
  - CUTANEOUS VASCULITIS [None]
  - PURPURA [None]
  - SKIN NECROSIS [None]
  - THROMBOSIS [None]
